FAERS Safety Report 5708496-X (Version None)
Quarter: 2008Q2

REPORT INFORMATION
  Report Type: 
  Country: None (occurrence: None)
  Receive Date: 20080417
  Receipt Date: 20080414
  Transmission Date: 20081010
  Serious: No
  Sender: FDA-Public Use
  Company Number: MY-ASTRAZENECA-2008AP02734

PATIENT
  Age: 77 Year
  Sex: Female

DRUGS (2)
  1. SEROQUEL [Suspect]
     Indication: SCHIZOPHRENIA
     Route: 048
  2. ATENOLOL [Concomitant]

REACTIONS (1)
  - NEUTROPENIA [None]
